FAERS Safety Report 9810687 (Version 2)
Quarter: 2015Q4

REPORT INFORMATION
  Report Type: Spontaneous
  Country: US (occurrence: US)
  Receive Date: 20140110
  Receipt Date: 20151228
  Transmission Date: 20160305
  Serious: Yes (Other)
  Sender: FDA-Public Use
  Company Number: US-SANOFI-AVENTIS-2013SA086555

PATIENT

DRUGS (3)
  1. PLAVIX [Suspect]
     Active Substance: CLOPIDOGREL BISULFATE
     Indication: ACUTE CORONARY SYNDROME
     Dosage: PLAVIX 75MG.
     Route: 065
     Dates: start: 200512, end: 200804
  2. PLAVIX [Suspect]
     Active Substance: CLOPIDOGREL BISULFATE
     Indication: STENT PLACEMENT
     Dosage: PLAVIX 75MG.
     Route: 065
     Dates: start: 200512, end: 200804
  3. ASPIRIN. [Concomitant]
     Active Substance: ASPIRIN
     Dates: start: 200512, end: 200804

REACTIONS (2)
  - Ulcer haemorrhage [Unknown]
  - Epistaxis [Recovered/Resolved]

NARRATIVE: CASE EVENT DATE: 20080408
